FAERS Safety Report 21224095 (Version 1)
Quarter: 2022Q3

REPORT INFORMATION
  Report Type: Spontaneous
  Country: US (occurrence: US)
  Receive Date: 20220817
  Receipt Date: 20220817
  Transmission Date: 20221026
  Serious: No
  Sender: FDA-Public Use
  Company Number: US-SA-2022MK000189

PATIENT
  Age: 68 Year
  Sex: Female
  Weight: 68.100 kg

DRUGS (7)
  1. AFREZZA [Suspect]
     Active Substance: INSULIN HUMAN
     Indication: Type 1 diabetes mellitus
     Dosage: 8 UNITS WITH MEALS
     Dates: start: 20220601, end: 20220602
  2. AFREZZA [Suspect]
     Active Substance: INSULIN HUMAN
     Dosage: 8 UNITS WITH MEALS
     Dates: start: 20220601, end: 20220602
  3. AFREZZA [Suspect]
     Active Substance: INSULIN HUMAN
     Dosage: 8 UNITS WITH MEALS
     Dates: start: 20220601, end: 20220602
  4. FIASP [Concomitant]
     Active Substance: INSULIN ASPART
     Indication: Type 1 diabetes mellitus
  5. LEVOXYL [Concomitant]
     Active Substance: LEVOTHYROXINE SODIUM
     Indication: Product used for unknown indication
  6. PRAVASTATIN [Concomitant]
     Active Substance: PRAVASTATIN
     Indication: Product used for unknown indication
  7. LISINOPRIL [Concomitant]
     Active Substance: LISINOPRIL
     Indication: Product used for unknown indication

REACTIONS (3)
  - Retching [Recovered/Resolved]
  - Throat irritation [Recovered/Resolved]
  - Headache [Recovered/Resolved]
